FAERS Safety Report 23949660 (Version 2)
Quarter: 2024Q3

REPORT INFORMATION
  Report Type: Spontaneous
  Country: US (occurrence: US)
  Receive Date: 20240607
  Receipt Date: 20240708
  Transmission Date: 20241017
  Serious: Yes (Death, Life-Threatening, Hospitalization, Other)
  Sender: AUROBINDO
  Company Number: US-MLMSERVICE-20240513-PI058498-00141-1

PATIENT
  Age: 57 Year
  Sex: Female

DRUGS (1)
  1. EXEMESTANE [Suspect]
     Active Substance: EXEMESTANE
     Indication: Breast cancer female
     Dosage: UNK
     Route: 065

REACTIONS (5)
  - Acute kidney injury [Fatal]
  - Haemoperitoneum [Fatal]
  - Peliosis hepatis [Fatal]
  - Shock haemorrhagic [Fatal]
  - Vascular compression [Fatal]
